FAERS Safety Report 22796458 (Version 3)
Quarter: 2025Q1

REPORT INFORMATION
  Report Type: Spontaneous
  Country: US (occurrence: US)
  Receive Date: 20230808
  Receipt Date: 20250123
  Transmission Date: 20250409
  Serious: Yes (Death, Disabling, Other)
  Sender: CHATTEM
  Company Number: US-OPELLA-2023OHG002547

PATIENT
  Age: 73 Year
  Sex: Male

DRUGS (1)
  1. GOLD BOND ORIGINAL STRENGTH [Suspect]
     Active Substance: MENTHOL
     Indication: Product used for unknown indication
     Route: 065

REACTIONS (7)
  - Mesothelioma [Fatal]
  - Disability [Unknown]
  - Exposure to chemical pollution [Unknown]
  - Anxiety [Unknown]
  - Injury [Unknown]
  - Anhedonia [Unknown]
  - Emotional distress [Unknown]
